FAERS Safety Report 6769558-1 (Version None)
Quarter: 2010Q2

REPORT INFORMATION
  Report Type: 
  Country: None (occurrence: None)
  Receive Date: 20100615
  Receipt Date: 20100608
  Transmission Date: 20101027
  Serious: Yes (Hospitalization, Other)
  Sender: FDA-Public Use
  Company Number: PHHY2010US16468

PATIENT
  Sex: Male

DRUGS (1)
  1. EXJADE [Suspect]
     Dosage: 1500 MG, BID
     Route: 048

REACTIONS (4)
  - COUGH [None]
  - INFECTION [None]
  - PNEUMONIA [None]
  - POLLAKIURIA [None]
